FAERS Safety Report 25765979 (Version 1)
Quarter: 2025Q3

REPORT INFORMATION
  Report Type: Spontaneous
  Country: US (occurrence: US)
  Receive Date: 20250905
  Receipt Date: 20250905
  Transmission Date: 20251021
  Serious: No
  Sender: DOMPE FARMACEUTICI
  Company Number: US-FARMAPROD-202407-2678

PATIENT
  Sex: Female
  Weight: 71.67 kg

DRUGS (28)
  1. OXERVATE [Suspect]
     Active Substance: CENEGERMIN-BKBJ
     Indication: Product used for unknown indication
     Route: 047
     Dates: start: 20240715
  2. ENBREL [Concomitant]
     Active Substance: ETANERCEPT
  3. SUCRALFATE [Concomitant]
     Active Substance: SUCRALFATE
  4. SPIRONOLACTONE [Concomitant]
     Active Substance: SPIRONOLACTONE
  5. VASCEPA [Concomitant]
     Active Substance: ICOSAPENT ETHYL
  6. CITALOPRAM HYDROBROMIDE [Concomitant]
     Active Substance: CITALOPRAM HYDROBROMIDE
  7. LISINOPRIL [Concomitant]
     Active Substance: LISINOPRIL
  8. SIMVASTATIN [Concomitant]
     Active Substance: SIMVASTATIN
  9. SIMVASTATIN [Concomitant]
     Active Substance: SIMVASTATIN
  10. SIMVASTATIN [Concomitant]
     Active Substance: SIMVASTATIN
  11. HUMIRA [Concomitant]
     Active Substance: ADALIMUMAB
  12. FERROUS SULFATE [Concomitant]
     Active Substance: FERROUS SULFATE
  13. FERROUS SULFATE [Concomitant]
     Active Substance: FERROUS SULFATE
  14. CALCITRIOL [Concomitant]
     Active Substance: CALCITRIOL
  15. METFORMIN HYDROCHLORIDE [Concomitant]
     Active Substance: METFORMIN HYDROCHLORIDE
  16. LANTUS SOLOSTAR [Concomitant]
     Active Substance: INSULIN GLARGINE
  17. AMITRIPTYLINE HYDROCHLORIDE [Concomitant]
     Active Substance: AMITRIPTYLINE HYDROCHLORIDE
  18. ENBREL [Concomitant]
     Active Substance: ETANERCEPT
  19. PANTOPRAZOLE SODIUM [Concomitant]
     Active Substance: PANTOPRAZOLE SODIUM
  20. HUMALOG JUNIOR KWIKPEN [Concomitant]
     Active Substance: INSULIN LISPRO
  21. FENOFIBRATE [Concomitant]
     Active Substance: FENOFIBRATE
  22. FENOFIBRATE [Concomitant]
     Active Substance: FENOFIBRATE
  23. NOVOLOG [Concomitant]
     Active Substance: INSULIN ASPART
  24. JANUVIA [Concomitant]
     Active Substance: SITAGLIPTIN PHOSPHATE
  25. LEFLUNOMIDE [Concomitant]
     Active Substance: LEFLUNOMIDE
  26. HUMALOG [Concomitant]
     Active Substance: INSULIN LISPRO
  27. GLIPIZIDE [Concomitant]
     Active Substance: GLIPIZIDE
  28. METAXALONE [Concomitant]
     Active Substance: METAXALONE

REACTIONS (1)
  - Eye pain [Unknown]
